FAERS Safety Report 15236515 (Version 1)
Quarter: 2018Q3

REPORT INFORMATION
  Report Type: Spontaneous
  Country: US (occurrence: US)
  Receive Date: 20180803
  Receipt Date: 20180803
  Transmission Date: 20181010
  Serious: Yes (Hospitalization)
  Sender: FDA-Public Use
  Company Number: US-TEVA-2018-US-937280

PATIENT
  Sex: Male

DRUGS (2)
  1. COPAXONE [Suspect]
     Active Substance: GLATIRAMER ACETATE
     Indication: MULTIPLE SCLEROSIS
     Route: 058
     Dates: start: 20170501
  2. COPAXONE [Suspect]
     Active Substance: GLATIRAMER ACETATE
     Route: 058
     Dates: start: 20091221, end: 20170101

REACTIONS (2)
  - Dysstasia [Recovering/Resolving]
  - Pain [Recovering/Resolving]
